FAERS Safety Report 15275508 (Version 1)
Quarter: 2018Q3

REPORT INFORMATION
  Report Type: Spontaneous
  Country: US (occurrence: US)
  Receive Date: 20180814
  Receipt Date: 20180814
  Transmission Date: 20181010
  Serious: Yes (Hospitalization)
  Sender: FDA-Public Use
  Company Number: US-STRIDES ARCOLAB LIMITED-2018SP001122

PATIENT

DRUGS (1)
  1. TACROLIMUS. [Suspect]
     Active Substance: TACROLIMUS
     Indication: RENAL TRANSPLANT
     Dosage: UNK
     Route: 065

REACTIONS (15)
  - Cytomegalovirus infection [Recovered/Resolved]
  - Histoplasmosis disseminated [Recovered/Resolved]
  - Disseminated intravascular coagulation [Recovered/Resolved]
  - Sepsis [Recovered/Resolved]
  - Hypotension [Recovered/Resolved]
  - Nodule [Recovered/Resolved]
  - Epstein-Barr virus infection [Recovered/Resolved]
  - Pancytopenia [Recovered/Resolved]
  - Tachycardia [Recovered/Resolved]
  - Skin lesion [Recovered/Resolved]
  - Peripheral swelling [Recovered/Resolved]
  - Erythema [Recovered/Resolved]
  - Cellulitis [Recovered/Resolved]
  - Mental status changes [Recovered/Resolved]
  - Rash [Recovered/Resolved]
